FAERS Safety Report 8609731-0 (Version None)
Quarter: 2012Q3

REPORT INFORMATION
  Report Type: 
  Country: None (occurrence: None)
  Receive Date: 20120821
  Receipt Date: 20120806
  Transmission Date: 20120928
  Serious: Yes (Disabling)
  Sender: FDA-Public Use
  Company Number: FI-INCYTE CORPORATION-2012IN000977

PATIENT
  Sex: Female
  Weight: 71 kg

DRUGS (13)
  1. INC424 [Suspect]
     Indication: MYELOFIBROSIS
     Dosage: 20 MG, BID
     Route: 048
     Dates: start: 20111212
  2. PRIMASPAN [Concomitant]
  3. CALCICHEW-D3 [Concomitant]
  4. FELODIPINE [Concomitant]
  5. INC424 [Suspect]
     Dosage: 25 MG, BID
     Route: 048
     Dates: start: 20120116
  6. POTASSIUM CHLORIDE [Concomitant]
  7. TRIPTYL [Concomitant]
  8. OMEPRAZOLE [Concomitant]
  9. PREDNISOLONE [Concomitant]
  10. NEORECORMON [Concomitant]
  11. SPESICOR DOS [Concomitant]
  12. NEURONTIN [Concomitant]
  13. PARATABS [Concomitant]

REACTIONS (1)
  - VISUAL IMPAIRMENT [None]
